FAERS Safety Report 19974644 (Version 1)
Quarter: 2021Q4

REPORT INFORMATION
  Report Type: Spontaneous
  Country: GB (occurrence: GB)
  Receive Date: 20211020
  Receipt Date: 20211020
  Transmission Date: 20220303
  Serious: Yes (Other)
  Sender: FDA-Public Use
  Company Number: None

PATIENT
  Age: 55 Year
  Sex: Male
  Weight: 79 kg

DRUGS (1)
  1. MIRTAZAPINE [Suspect]
     Active Substance: MIRTAZAPINE
     Indication: Depression
     Dosage: 15MG (COULD NOT TOLERATE) - 4.5MG (CANNOT GO LOWER WITHOUT THE MOST DEBILITATING SYMPTOMS)
     Route: 048
     Dates: start: 20190401

REACTIONS (1)
  - Adverse drug reaction [Recovering/Resolving]
